FAERS Safety Report 14874294 (Version 5)
Quarter: 2020Q4

REPORT INFORMATION
  Report Type: Report from Study
  Country: US (occurrence: US)
  Receive Date: 20180510
  Receipt Date: 20201126
  Transmission Date: 20210113
  Serious: Yes (Hospitalization, Other)
  Sender: FDA-Public Use
  Company Number: US-SA-2018SA122110

PATIENT

DRUGS (4)
  1. IMMUNOGLOBULINS NOS [Suspect]
     Active Substance: IMMUNE GLOBULIN NOS
     Dosage: UNK
  2. IMMUNOGLOBULINS NOS [Suspect]
     Active Substance: IMMUNE GLOBULIN NOS
     Dosage: 65 MG ALTERNATES WITH 70 MG , QOW
     Route: 042
  3. LEMTRADA [Suspect]
     Active Substance: ALEMTUZUMAB
     Indication: MULTIPLE SCLEROSIS
     Dosage: 12 MG,QD
     Route: 041
     Dates: start: 20180416, end: 20180420
  4. IMMUNOGLOBULINS NOS [Suspect]
     Active Substance: IMMUNE GLOBULIN NOS
     Indication: MULTIPLE SCLEROSIS
     Dosage: 65 MG ALTERNATES WITH 70 MG , QOW
     Route: 042
     Dates: start: 20190404, end: 20190405

REACTIONS (11)
  - Paranasal sinus discomfort [Not Recovered/Not Resolved]
  - Multiple sclerosis relapse [Unknown]
  - Pyrexia [Recovered/Resolved]
  - Migraine [Unknown]
  - Headache [Recovered/Resolved]
  - Dysuria [Recovered/Resolved]
  - Pollakiuria [Recovered/Resolved]
  - Autoimmune disorder [Unknown]
  - Urinary tract infection [Recovered/Resolved]
  - Urine analysis abnormal [Recovered/Resolved]
  - Unevaluable event [Recovered/Resolved]

NARRATIVE: CASE EVENT DATE: 20180419
